FAERS Safety Report 24435232 (Version 2)
Quarter: 2024Q4

REPORT INFORMATION
  Report Type: Report from Study
  Country: ZA (occurrence: ZA)
  Receive Date: 20241015
  Receipt Date: 20241112
  Transmission Date: 20250114
  Serious: Yes (Hospitalization)
  Sender: ABBVIE
  Company Number: ZA-ABBOTT-2024A-1389679

PATIENT
  Age: 73 Year
  Sex: Male

DRUGS (32)
  1. CREON [Suspect]
     Active Substance: PANCRELIPASE AMYLASE\PANCRELIPASE LIPASE\PANCRELIPASE PROTEASE
     Indication: Pancreatic failure
     Dosage: 300 MG TAKE ONE CAPSULE THREE TIMES A DAY?25000,
     Route: 048
  2. ASACOL [Concomitant]
     Active Substance: MESALAMINE
     Indication: Colitis ulcerative
     Dosage: 400 MG TAKE THREE TABLETS DAILY
     Route: 048
  3. ATORVASTATIN [Concomitant]
     Active Substance: ATORVASTATIN
     Indication: Blood cholesterol abnormal
     Dosage: 40 MG TAKE ONE TABLET AT NIGHT
     Route: 048
  4. ATORVASTATIN [Concomitant]
     Active Substance: ATORVASTATIN
     Indication: Blood cholesterol abnormal
     Dosage: 40 MG TAKE ONE TABLET AT NIGHT
     Route: 048
  5. CLOPIDOGREL BISULFATE [Concomitant]
     Active Substance: CLOPIDOGREL BISULFATE
     Indication: Blood disorder prophylaxis
     Dosage: 75 MG TAKE ONE TABLET DAILY
     Route: 048
  6. CLOPIDOGREL BISULFATE [Concomitant]
     Active Substance: CLOPIDOGREL BISULFATE
     Indication: Blood disorder prophylaxis
     Dosage: 75 MG TAKE ONE TABLET DAILY
     Route: 048
  7. LACTULOSE [Concomitant]
     Active Substance: LACTULOSE
     Indication: Product used for unknown indication
     Dosage: 3.3 G TAKE TWO MEDICINE MEASURE (10ML) DAILY
     Route: 048
  8. RIVAROXABAN [Concomitant]
     Active Substance: RIVAROXABAN
     Indication: Blood disorder prophylaxis
     Dosage: 15 MG TAKE ONE TABLET DAILY
     Route: 048
  9. CLARITHROMYCIN [Concomitant]
     Active Substance: CLARITHROMYCIN
     Indication: Product used for unknown indication
     Dosage: 500 MG TAKE ONE TABLET DAILY
     Route: 048
  10. CLARITHROMYCIN [Concomitant]
     Active Substance: CLARITHROMYCIN
     Indication: Product used for unknown indication
     Dosage: 500 MG TAKE ONE TABLET DAILY
     Route: 048
  11. Spiractin [Concomitant]
     Indication: Hypertension
     Dosage: 25 MG TAKE ONE TABLET TWICE A DAY
     Route: 048
  12. Spiractin [Concomitant]
     Indication: Hypertension
     Dosage: 25 MG TAKE TWO TABLETS DAILY
     Route: 048
  13. Pantocid [Concomitant]
     Indication: Ulcer
     Dosage: 40 MG TAKE ONE TABLET TWICE A DAY
     Route: 048
  14. Pantocid [Concomitant]
     Indication: Ulcer
     Dosage: 40 MG TAKE ONE TABLET IN THE MORNING
     Route: 048
  15. DUTASTERIDE\TAMSULOSIN HYDROCHLORIDE [Concomitant]
     Active Substance: DUTASTERIDE\TAMSULOSIN HYDROCHLORIDE
     Indication: Prostatomegaly
     Dosage: 0.5/0.4 MG TAKE ONE CAPSULE AT NIGHT
     Route: 048
  16. ESOMEPRAZOLE MAGNESIUM [Concomitant]
     Active Substance: ESOMEPRAZOLE MAGNESIUM
     Indication: Gastrooesophageal reflux disease
     Dosage: 40 MG TAKE ONE TABLET IN THE MORNING
     Route: 048
  17. ESOMEPRAZOLE MAGNESIUM [Concomitant]
     Active Substance: ESOMEPRAZOLE MAGNESIUM
     Indication: Gastrooesophageal reflux disease
     Dosage: 40 MG TAKE ONE TABLET IN THE MORNING
     Route: 048
  18. Allergex [Concomitant]
     Indication: Hypersensitivity
     Dosage: 4 MG AS PER PACKAGE INSERT
     Route: 048
  19. PENTASA [Concomitant]
     Active Substance: MESALAMINE
     Indication: Irritable bowel syndrome
     Dosage: 1000 MG INSERT ONE PER RECTUM ONCE A DAY AT NIGHT
     Route: 054
  20. PENTASA [Concomitant]
     Active Substance: MESALAMINE
     Indication: Irritable bowel syndrome
     Dosage: 2000 MG ONE DISSOLVED IN WATER TWICE A DAY
     Route: 048
  21. PICOPREP [Concomitant]
     Active Substance: ANHYDROUS CITRIC ACID\MAGNESIUM OXIDE\SODIUM PICOSULFATE
     Indication: Product used for unknown indication
     Dosage: REFER TO PACKAGE INSERT
     Route: 048
  22. CARVEDILOL [Concomitant]
     Active Substance: CARVEDILOL
     Indication: Hypertension
     Dosage: 6.25 MG HALF TWICE A DAY
     Route: 048
  23. Synaleve [Concomitant]
     Indication: Pain
     Dosage: TAKE TWO CAPSULES SIX HOURLY WHEN NECESSARY
     Route: 048
  24. AZATHIOPRINE PCH [Concomitant]
     Indication: Crohn^s disease
     Dosage: 50 MG TAKE FOUR TABLETS DAILY
     Route: 048
  25. MAGNESIUM CHLORIDE [Concomitant]
     Active Substance: MAGNESIUM CHLORIDE
     Indication: Product used for unknown indication
     Dosage: TAKE ONE TWICE A DAY
     Route: 048
  26. MEFENAMIC ACID [Concomitant]
     Active Substance: MEFENAMIC ACID
     Indication: Pain
     Dosage: 250 MG TAKE 1-2 CAPSULES THREE TIMES A DAY
     Route: 048
  27. Stopayne [Concomitant]
     Indication: Pain
     Dosage: TAKE TWO TABLETS THREE TIMES A DAY
     Route: 048
  28. Sinutab [Concomitant]
     Indication: Product used for unknown indication
     Dosage: 1 MG TAKE ONE TO TWO SPRAYS THREE TIMES A DAYIN EACH NOSTRIL
     Route: 045
  29. FYBOGEL ORANGE [Concomitant]
     Indication: Product used for unknown indication
     Dosage: 3.5 G TAKE ONE SACHET DAILY DISSOLVED IN WATER
     Route: 048
  30. FUROSEMIDE [Concomitant]
     Active Substance: FUROSEMIDE
     Indication: Hypertension
     Dosage: 40 MG TAKE HALF A TABLET DAILY
     Route: 048
  31. NEUROBION [Concomitant]
     Active Substance: CYANOCOBALAMIN\PYRIDOXINE\THIAMINE
     Indication: Product used for unknown indication
     Dosage: TAKE ONE TABLET DAILY
     Route: 048
  32. ENALAPRIL [Concomitant]
     Active Substance: ENALAPRIL
     Indication: Hypertension
     Dosage: 5 MG TAKE ONE TABLET TWICE A DAY
     Route: 048

REACTIONS (1)
  - Liver disorder [Unknown]
